FAERS Safety Report 13403606 (Version 1)
Quarter: 2017Q2

REPORT INFORMATION
  Report Type: Spontaneous
  Country: CA (occurrence: CA)
  Receive Date: 20170404
  Receipt Date: 20170404
  Transmission Date: 20170830
  Serious: Yes (Other)
  Sender: FDA-Public Use
  Company Number: CA-TEVA-756179ACC

PATIENT
  Age: 77 Year
  Sex: Female
  Weight: 72.64 kg

DRUGS (1)
  1. CO ROSUVASTATIN [Suspect]
     Active Substance: ROSUVASTATIN
     Indication: LOW DENSITY LIPOPROTEIN
     Route: 048

REACTIONS (2)
  - Dyspnoea [Recovered/Resolved]
  - Product substitution issue [Recovered/Resolved]
